FAERS Safety Report 23457830 (Version 1)
Quarter: 2024Q1

REPORT INFORMATION
  Report Type: Spontaneous
  Country: US (occurrence: US)
  Receive Date: 20240130
  Receipt Date: 20240130
  Transmission Date: 20240410
  Serious: No
  Sender: FDA-Public Use
  Company Number: US-JNJFOC-20231111766

PATIENT
  Sex: Female

DRUGS (11)
  1. TYLENOL REGULAR STRENGTH [Suspect]
     Active Substance: ACETAMINOPHEN
     Indication: Pain
     Dosage: CHILD 1?1 OR 2 TABLETS BY MOUTH EVERY 6 HOURS AS NEEDED FOR PAIN.
     Route: 048
     Dates: start: 201211, end: 201308
  2. TYLENOL REGULAR STRENGTH [Suspect]
     Active Substance: ACETAMINOPHEN
     Indication: Headache
     Dosage: CHILD 2?1 OR 2 TABLETS BY MOUTH EVERY 6 HOURS AS NEEDED FOR PAIN
     Route: 048
     Dates: start: 200409, end: 200502
  3. TYLENOL REGULAR STRENGTH [Suspect]
     Active Substance: ACETAMINOPHEN
     Indication: Pyrexia
  4. TYLENOL EXTRA STRENGTH [Suspect]
     Active Substance: ACETAMINOPHEN
     Indication: Pain
     Dosage: CHILD 1
     Route: 048
     Dates: start: 201211, end: 201308
  5. TYLENOL EXTRA STRENGTH [Suspect]
     Active Substance: ACETAMINOPHEN
     Indication: Headache
     Dosage: CHILD 2?1 GEL CAP BY MOUTH EVERY 6 HOURS AS NEEDED FOR PAIN.
     Route: 048
     Dates: start: 200409, end: 200502
  6. TYLENOL EXTRA STRENGTH [Suspect]
     Active Substance: ACETAMINOPHEN
     Indication: Pyrexia
  7. TYLENOL EXTRA STRENGTH [Suspect]
     Active Substance: ACETAMINOPHEN
     Indication: Product used for unknown indication
     Dosage: CHILD 1
     Route: 065
     Dates: start: 201211, end: 201308
  8. TYLENOL EXTRA STRENGTH [Suspect]
     Active Substance: ACETAMINOPHEN
     Dosage: CHILD 2
     Route: 065
     Dates: start: 200404, end: 200502
  9. TYLENOL [Suspect]
     Active Substance: ACETAMINOPHEN
     Indication: Pain
     Route: 048
     Dates: start: 200405, end: 200502
  10. MOTRIN [Concomitant]
     Active Substance: IBUPROFEN
     Indication: Pain
     Route: 065
     Dates: start: 200405, end: 200502
  11. MOTRIN [Concomitant]
     Active Substance: IBUPROFEN
     Route: 065
     Dates: start: 201211, end: 201308

REACTIONS (1)
  - Exposure during pregnancy [Unknown]
